FAERS Safety Report 11815744 (Version 2)
Quarter: 2015Q4

REPORT INFORMATION
  Report Type: Report from Study
  Country: CA (occurrence: CA)
  Receive Date: 20151209
  Receipt Date: 20151218
  Transmission Date: 20160305
  Serious: Yes (Congenital Anomaly)
  Sender: FDA-Public Use
  Company Number: CA-DUCHESNAY INC.-1045269

PATIENT
  Sex: Female

DRUGS (4)
  1. DICLEGIS [Suspect]
     Active Substance: DOXYLAMINE SUCCINATE\PYRIDOXINE HYDROCHLORIDE
     Route: 064
     Dates: start: 20110520
  2. NEXIUM [Concomitant]
     Active Substance: ESOMEPRAZOLE MAGNESIUM
     Route: 064
     Dates: start: 20110519
  3. PRENATAL VITAMINS (UNSPECIFIED) [Concomitant]
     Route: 064
     Dates: start: 20110301
  4. CEPACOL LOZENGES [Concomitant]
     Route: 064
     Dates: start: 20110519, end: 20110519

REACTIONS (2)
  - Congenital central nervous system anomaly [None]
  - Congenital spinal cord anomaly [None]
